FAERS Safety Report 25314745 (Version 1)
Quarter: 2025Q2

REPORT INFORMATION
  Report Type: Spontaneous
  Country: CA (occurrence: CA)
  Receive Date: 20250514
  Receipt Date: 20250514
  Transmission Date: 20250717
  Serious: Yes (Other)
  Sender: MYLAN
  Company Number: CA-MYLANLABS-2025M1038562

PATIENT
  Age: 70 Year
  Sex: Female

DRUGS (32)
  1. VERAPAMIL [Suspect]
     Active Substance: VERAPAMIL HYDROCHLORIDE
     Indication: Migraine
  2. ELETRIPTAN [Suspect]
     Active Substance: ELETRIPTAN
     Indication: Product used for unknown indication
  3. AIMOVIG [Suspect]
     Active Substance: ERENUMAB-AOOE
     Indication: Migraine
  4. PROPRANOLOL HYDROCHLORIDE [Suspect]
     Active Substance: PROPRANOLOL HYDROCHLORIDE
     Indication: Migraine
     Dosage: 160 MILLIGRAM, QD (1 EVERY 1 DAY)
  5. OXYCODONE AND ACETAMINOPHEN [Suspect]
     Active Substance: ACETAMINOPHEN\OXYCODONE HYDROCHLORIDE
     Indication: Migraine
  6. MAGNESIUM [Suspect]
     Active Substance: MAGNESIUM
     Indication: Migraine
  7. HYDROMORPHONE HYDROCHLORIDE [Suspect]
     Active Substance: HYDROMORPHONE HYDROCHLORIDE
     Indication: Migraine
     Dosage: 4 MILLIGRAM, QD (1 EVERY 1 DAY)
  8. HYDROMORPHONE HYDROCHLORIDE [Suspect]
     Active Substance: HYDROMORPHONE HYDROCHLORIDE
     Dosage: 4 MILLIGRAM, QD (1 EVERY 1 DAY)
  9. METOPROLOL [Suspect]
     Active Substance: METOPROLOL
     Indication: Migraine
     Dosage: 50 MILLIGRAM, QD (1 EVERY 1 DAY)
  10. CALCIUM [Concomitant]
     Active Substance: CALCIUM
  11. ERGOCALCIFEROL [Concomitant]
     Active Substance: ERGOCALCIFEROL
     Indication: Product used for unknown indication
  12. GABAPENTIN [Concomitant]
     Active Substance: GABAPENTIN
     Indication: Product used for unknown indication
  13. HYDROCHLOROTHIAZIDE [Concomitant]
     Active Substance: HYDROCHLOROTHIAZIDE
     Indication: Product used for unknown indication
  14. HYDROCHLOROTHIAZIDE [Concomitant]
     Active Substance: HYDROCHLOROTHIAZIDE
  15. AMITRIPTYLINE [Concomitant]
     Active Substance: AMITRIPTYLINE
     Indication: Migraine prophylaxis
  16. LIPITOR [Concomitant]
     Active Substance: ATORVASTATIN CALCIUM
     Indication: Product used for unknown indication
  17. NIFEDIPINE [Concomitant]
     Active Substance: NIFEDIPINE
     Indication: Migraine prophylaxis
  18. PANTOPRAZOLE SODIUM [Concomitant]
     Active Substance: PANTOPRAZOLE SODIUM
     Indication: Product used for unknown indication
  19. PIZOTYLINE MALEATE [Concomitant]
     Active Substance: PIZOTYLINE MALEATE
     Indication: Migraine prophylaxis
     Dosage: 6 MILLIGRAM, QD (1 EVERY 1 DAY)
  20. PROZAC [Concomitant]
     Active Substance: FLUOXETINE HYDROCHLORIDE
     Indication: Migraine prophylaxis
  21. ACETAMINOPHEN [Concomitant]
     Active Substance: ACETAMINOPHEN
     Indication: Arthritis
     Dosage: 4000 MILLIGRAM, QD (1 EVERY 1 DAYS)
  22. ACETAMINOPHEN [Concomitant]
     Active Substance: ACETAMINOPHEN
  23. RABEPRAZOLE [Concomitant]
     Active Substance: RABEPRAZOLE
     Indication: Product used for unknown indication
  24. REMERON [Concomitant]
     Active Substance: MIRTAZAPINE
     Indication: Migraine prophylaxis
  25. RIBOFLAVIN [Concomitant]
     Active Substance: RIBOFLAVIN
     Indication: Product used for unknown indication
  26. SERTRALINE HYDROCHLORIDE [Concomitant]
     Active Substance: SERTRALINE HYDROCHLORIDE
     Indication: Product used for unknown indication
     Dosage: 200 MILLIGRAM, QD (1 EVERY 1 DAYS)
  27. VALPROATE SODIUM [Concomitant]
     Active Substance: VALPROATE SODIUM
     Indication: Migraine prophylaxis
     Dosage: 500 MILLIGRAM, QD (1 EVERY 1 DAYS)
  28. TOPAMAX [Concomitant]
     Active Substance: TOPIRAMATE
     Indication: Migraine prophylaxis
     Dosage: 200 MILLIGRAM, QD (1 EVERY 1 DAY)
  29. TOPIRAMATE [Concomitant]
     Active Substance: TOPIRAMATE
     Indication: Migraine
  30. VITAMIN B12 [Concomitant]
     Active Substance: CYANOCOBALAMIN
     Indication: Product used for unknown indication
  31. ZOPICLONE [Concomitant]
     Active Substance: ZOPICLONE
     Indication: Product used for unknown indication
  32. ZOPICLONE [Concomitant]
     Active Substance: ZOPICLONE
     Dosage: 15 MILLIGRAM, QD (1 EVERY 1 DAY)

REACTIONS (14)
  - Anxiety [Unknown]
  - Blood pressure increased [Unknown]
  - Pain [Unknown]
  - Rubber sensitivity [Unknown]
  - Stress [Unknown]
  - Breast pain [Unknown]
  - Medication overuse headache [Unknown]
  - Communication disorder [Unknown]
  - Paraesthesia [Unknown]
  - Headache [Unknown]
  - Off label use [Unknown]
  - Drug ineffective for unapproved indication [Unknown]
  - Contraindicated product administered [Unknown]
  - Drug ineffective [Unknown]
